FAERS Safety Report 8307485-9 (Version None)
Quarter: 2012Q2

REPORT INFORMATION
  Report Type: 
  Country: None (occurrence: None)
  Receive Date: 20120424
  Receipt Date: 20120417
  Transmission Date: 20120825
  Serious: Yes (Other)
  Sender: FDA-Public Use
  Company Number: FR-PFIZER INC-2012094507

PATIENT
  Age: 9 Year
  Sex: Male

DRUGS (6)
  1. ETOPOSIDE [Concomitant]
  2. MITOXANTRONE [Concomitant]
  3. VFEND [Suspect]
     Indication: BRONCHOPULMONARY ASPERGILLOSIS
     Dosage: 200 MG, 2X/DAY
     Route: 048
     Dates: start: 20110617, end: 20110815
  4. DEXAMETHASONE [Concomitant]
  5. CLOFARABINE [Concomitant]
  6. ASPARAGINASE [Concomitant]

REACTIONS (2)
  - DERMATITIS EXFOLIATIVE [None]
  - PHOTOSENSITIVITY REACTION [None]
